FAERS Safety Report 13167145 (Version 1)
Quarter: 2017Q1

REPORT INFORMATION
  Report Type: Spontaneous
  Country: US (occurrence: US)
  Receive Date: 20170131
  Receipt Date: 20170131
  Transmission Date: 20170428
  Serious: Yes (Other)
  Sender: FDA-Public Use
  Company Number: US-PFIZER INC-2017034706

PATIENT
  Age: 47 Year
  Sex: Male

DRUGS (1)
  1. XANAX [Suspect]
     Active Substance: ALPRAZOLAM
     Dosage: UNK

REACTIONS (43)
  - Blister [Unknown]
  - Sinus disorder [Unknown]
  - Pain in extremity [Unknown]
  - Malaise [Unknown]
  - Balance disorder [Unknown]
  - Prostatitis [Unknown]
  - Hypersomnia [Unknown]
  - Gait disturbance [Unknown]
  - Muscle spasms [Unknown]
  - Anxiety [Unknown]
  - Photosensitivity reaction [Unknown]
  - Amnesia [Unknown]
  - Fatigue [Unknown]
  - Joint range of motion decreased [Unknown]
  - Dry mouth [Unknown]
  - Porphyria [Unknown]
  - Mouth ulceration [Unknown]
  - Ear disorder [Unknown]
  - Arthralgia [Unknown]
  - Sinusitis [Unknown]
  - Loss of consciousness [Unknown]
  - Feelings of worthlessness [Unknown]
  - Headache [Unknown]
  - Confusional state [Unknown]
  - Somnolence [Unknown]
  - Constipation [Unknown]
  - Dry skin [Unknown]
  - Erythema [Unknown]
  - Pain [Unknown]
  - Condition aggravated [Unknown]
  - Tachycardia [Unknown]
  - Vomiting [Unknown]
  - Depressed mood [Unknown]
  - Pyrexia [Unknown]
  - Disturbance in attention [Unknown]
  - Faeces discoloured [Unknown]
  - Diarrhoea [Unknown]
  - Tremor [Unknown]
  - Abdominal discomfort [Unknown]
  - Pilonidal cyst [Unknown]
  - Asthenia [Unknown]
  - Paraesthesia [Unknown]
  - Dizziness [Unknown]
